FAERS Safety Report 4980376-7 (Version None)
Quarter: 2006Q2

REPORT INFORMATION
  Report Type: 
  Country: None (occurrence: None)
  Receive Date: 20060424
  Receipt Date: 20060413
  Transmission Date: 20061013
  Serious: Yes (Other)
  Sender: FDA-Public Use
  Company Number: PHEH2006US04903

PATIENT
  Age: 67 Year
  Sex: Female

DRUGS (3)
  1. VIVELLE-DOT [Suspect]
     Indication: HORMONE REPLACEMENT THERAPY
     Dosage: UNK, BIW
     Route: 062
  2. PLAQUENIL [Concomitant]
     Indication: ARTHRITIS
     Dates: start: 19850101
  3. VITAMINS [Concomitant]

REACTIONS (7)
  - ALOPECIA [None]
  - BLOOD CHOLESTEROL INCREASED [None]
  - CHOLECYSTECTOMY [None]
  - FLUID RETENTION [None]
  - HYPOTRICHOSIS [None]
  - HYSTERECTOMY [None]
  - UTERINE LEIOMYOMA [None]
